FAERS Safety Report 16095586 (Version 1)
Quarter: 2019Q1

REPORT INFORMATION
  Report Type: Spontaneous
  Country: CO (occurrence: CO)
  Receive Date: 20190320
  Receipt Date: 20190320
  Transmission Date: 20190418
  Serious: Yes (Hospitalization, Other)
  Sender: FDA-Public Use
  Company Number: CO-BAYER-2019-053692

PATIENT
  Age: 4 Year
  Sex: Male

DRUGS (1)
  1. KOVALTRY [Suspect]
     Active Substance: ANTIHEMOPHILIC FACTOR, HUMAN RECOMBINANT
     Indication: FACTOR VIII DEFICIENCY
     Dosage: 16.6 IU/KG, UNK
     Route: 042
     Dates: start: 201802, end: 201903

REACTIONS (7)
  - Haemarthrosis [None]
  - Traumatic haemorrhage [Not Recovered/Not Resolved]
  - Anti factor VIII antibody increased [None]
  - Drug ineffective [None]
  - Head injury [None]
  - Skin wound [None]
  - Fall [None]

NARRATIVE: CASE EVENT DATE: 201903
